FAERS Safety Report 7067680-6 (Version None)
Quarter: 2010Q4

REPORT INFORMATION
  Report Type: 
  Country: None (occurrence: None)
  Receive Date: 20101028
  Receipt Date: 20101019
  Transmission Date: 20110411
  Serious: Yes (Hospitalization)
  Sender: FDA-Public Use
  Company Number: US-ASTRAZENECA-2010SE49343

PATIENT
  Age: 39 Year
  Sex: Male

DRUGS (5)
  1. NEXIUM [Suspect]
     Indication: GASTROOESOPHAGEAL REFLUX DISEASE
     Route: 048
     Dates: start: 20080101
  2. ASACOL [Concomitant]
  3. SIMCOR [Concomitant]
     Dosage: 750/20 MGS
  4. LIALDA [Concomitant]
     Dosage: 1.2
  5. MICARDIS [Concomitant]
     Dosage: 40 MGS

REACTIONS (5)
  - DRUG DOSE OMISSION [None]
  - FALL [None]
  - GASTROOESOPHAGEAL REFLUX DISEASE [None]
  - JOINT INJURY [None]
  - THROMBOSIS [None]
